FAERS Safety Report 15774355 (Version 2)
Quarter: 2024Q1

REPORT INFORMATION
  Report Type: Spontaneous
  Country: KR (occurrence: KR)
  Receive Date: 20181229
  Receipt Date: 20240129
  Transmission Date: 20240410
  Serious: Yes (Life-Threatening, Hospitalization, Other)
  Sender: FDA-Public Use
  Company Number: KR-ACCORD-097939

PATIENT
  Age: 6 Year
  Sex: Female

DRUGS (14)
  1. MYCOPHENOLATE MOFETIL [Suspect]
     Active Substance: MYCOPHENOLATE MOFETIL
     Indication: Immunosuppression
     Dosage: 600 MG/M2/DOSE TWICE DAILY
  2. TACROLIMUS [Suspect]
     Active Substance: TACROLIMUS
     Indication: Immunosuppression
     Dosage: DOSE OF TACROLIMUS WAS REDUCED WITH A GOAL TROUGH LEVEL OF 3-5 NG/ML
  3. METHYLPREDNISOLONE [Suspect]
     Active Substance: METHYLPREDNISOLONE
     Indication: Immunosuppression
     Dosage: EVERY 8 HOURS FOR 1 DAY -1 MG/KG/DAY FOR 1 MONTH-15 MG/KG PER DOSE
  4. AMPHOTERICIN B [Suspect]
     Active Substance: AMPHOTERICIN B
     Indication: Pyelonephritis acute
     Dosage: PER DOSE
  5. BASILIXIMAB [Suspect]
     Active Substance: BASILIXIMAB
     Indication: Immunosuppressant drug therapy
  6. PREDNISONE [Suspect]
     Active Substance: PREDNISONE
     Indication: Immunosuppression
     Dosage: MAINTENANCE DOSE
  7. RITUXIMAB [Concomitant]
     Active Substance: RITUXIMAB
     Indication: Epstein-Barr virus associated lymphoproliferative disorder
  8. CYCLOPHOSPHAMIDE [Concomitant]
     Active Substance: CYCLOPHOSPHAMIDE
     Indication: Epstein-Barr virus associated lymphoproliferative disorder
  9. DOXORUBICIN [Concomitant]
     Active Substance: DOXORUBICIN
     Indication: Epstein-Barr virus associated lymphoproliferative disorder
  10. VINCRISTINE [Concomitant]
     Active Substance: VINCRISTINE
     Indication: Epstein-Barr virus associated lymphoproliferative disorder
  11. TACROLIMUS [Suspect]
     Active Substance: TACROLIMUS
     Indication: Immunosuppression
     Dosage: TROUGH LEVEL OF TACROLIMUS WAS 3.5 NG/ML
  12. TACROLIMUS [Suspect]
     Active Substance: TACROLIMUS
     Indication: Immunosuppression
     Dosage: GOAL TROUGH LEVEL OF 2 NG/ML
  13. TACROLIMUS [Suspect]
     Active Substance: TACROLIMUS
     Indication: Immunosuppression
     Dosage: WAS TITRATED FOR A TROUGH LEVEL OF 10-15 NG/ML
  14. TACROLIMUS [Suspect]
     Active Substance: TACROLIMUS
     Indication: Immunosuppression
     Dosage: WAS TITRATED FOR A TROUGH LEVEL OF 10-15 NG/ML

REACTIONS (9)
  - Epstein-Barr virus associated lymphoproliferative disorder [Unknown]
  - Polyomavirus-associated nephropathy [Unknown]
  - Acute kidney injury [Recovering/Resolving]
  - Cytopenia [Unknown]
  - Posterior reversible encephalopathy syndrome [Unknown]
  - Central nervous system viral infection [Unknown]
  - Toxicity to various agents [Unknown]
  - Gastrointestinal disorder [Unknown]
  - BK virus infection [Unknown]
